FAERS Safety Report 16376383 (Version 27)
Quarter: 2020Q2

REPORT INFORMATION
  Report Type: Report from Study
  Country: IL (occurrence: IL)
  Receive Date: 20190531
  Receipt Date: 20200615
  Transmission Date: 20200713
  Serious: Yes (Death, Hospitalization)
  Sender: FDA-Public Use
  Company Number: IL-SA-2018SA296562

PATIENT

DRUGS (9)
  1. CANNABIS [Concomitant]
     Active Substance: CANNABIS SATIVA SUBSP. INDICA TOP
     Indication: MULTIPLE SCLEROSIS
  2. PREDNISONE. [Concomitant]
     Active Substance: PREDNISONE
     Indication: PROPHYLAXIS
     Dosage: 60 MG
     Route: 048
     Dates: start: 20180917, end: 20181003
  3. FEXOFENADINE [Concomitant]
     Active Substance: FEXOFENADINE HYDROCHLORIDE
     Dosage: 180 MG
     Route: 048
     Dates: start: 20180913, end: 20181010
  4. ZOVIRAX [ACICLOVIR SODIUM] [Concomitant]
     Indication: PROPHYLAXIS
     Dosage: 200 MG
     Route: 048
     Dates: start: 20180913, end: 20181010
  5. CANNABIS [Concomitant]
     Active Substance: CANNABIS SATIVA SUBSP. INDICA TOP
     Indication: MUSCLE SPASTICITY
     Dosage: 30 G, QM
     Dates: start: 201812
  6. CANNABIS [Concomitant]
     Active Substance: CANNABIS SATIVA SUBSP. INDICA TOP
     Indication: PAIN
     Dosage: 20 G, QM
     Route: 065
     Dates: start: 201802, end: 201812
  7. CLEXANE [Concomitant]
     Active Substance: ENOXAPARIN SODIUM
     Indication: THROMBOSIS PROPHYLAXIS
     Dosage: UNK UNK, UNK
     Route: 065
     Dates: start: 201908
  8. ALEMTUZUMAB [Suspect]
     Active Substance: ALEMTUZUMAB
     Indication: RELAPSING MULTIPLE SCLEROSIS
     Dosage: 12 MG, QD
     Route: 041
     Dates: start: 20180913, end: 20180917
  9. SOLU-MEDROL [Concomitant]
     Active Substance: METHYLPREDNISOLONE SODIUM SUCCINATE
     Indication: PROPHYLAXIS
     Dosage: 1000 G
     Route: 042

REACTIONS (9)
  - Cytomegalovirus infection [Recovered/Resolved]
  - Dermatitis allergic [Recovered/Resolved]
  - Multiple sclerosis relapse [Recovered/Resolved]
  - Migraine with aura [Recovered/Resolved]
  - Pancytopenia [Not Recovered/Not Resolved]
  - Varicella zoster virus infection [Fatal]
  - Constipation [Recovering/Resolving]
  - Muscle spasticity [Not Recovered/Not Resolved]
  - Encephalitis viral [Recovered/Resolved]

NARRATIVE: CASE EVENT DATE: 20180918
